FAERS Safety Report 11127255 (Version 2)
Quarter: 2015Q4

REPORT INFORMATION
  Report Type: Report from Study
  Country: US (occurrence: US)
  Receive Date: 20150521
  Receipt Date: 20151113
  Transmission Date: 20160304
  Serious: Yes (Hospitalization, Other)
  Sender: FDA-Public Use
  Company Number: US-AMGEN-USASL2015048236

PATIENT
  Age: 63 Year
  Sex: Male

DRUGS (1)
  1. ENBREL [Suspect]
     Active Substance: ETANERCEPT
     Indication: RHEUMATOID ARTHRITIS
     Dosage: 50 MG, QWK
     Route: 065
     Dates: start: 201409, end: 20150508

REACTIONS (4)
  - Acoustic neuroma [Unknown]
  - Ageusia [Unknown]
  - Post procedural discharge [Unknown]
  - Anosmia [Unknown]

NARRATIVE: CASE EVENT DATE: 2014
